FAERS Safety Report 20723464 (Version 2)
Quarter: 2022Q2

REPORT INFORMATION
  Report Type: Spontaneous
  Country: DE (occurrence: DE)
  Receive Date: 20220419
  Receipt Date: 20220603
  Transmission Date: 20220721
  Serious: Yes (Death, Other)
  Sender: FDA-Public Use
  Company Number: DE-SUN PHARMACEUTICAL INDUSTRIES LTD-2022RR-333455

PATIENT
  Age: 59 Year
  Sex: Male

DRUGS (6)
  1. TILDRAKIZUMAB [Suspect]
     Active Substance: TILDRAKIZUMAB
     Indication: Psoriasis
     Dosage: 150 MILLIGRAM, 1ST INJECTION
     Route: 065
     Dates: start: 20210210
  2. TILDRAKIZUMAB [Suspect]
     Active Substance: TILDRAKIZUMAB
     Dosage: 150 MILLIGRAM, 2ND INJECTION
     Route: 065
     Dates: start: 20210310
  3. TILDRAKIZUMAB [Suspect]
     Active Substance: TILDRAKIZUMAB
     Dosage: 150 MILLIGRAM, 3RD INJECTION
     Route: 065
     Dates: start: 20210602
  4. TILDRAKIZUMAB [Suspect]
     Active Substance: TILDRAKIZUMAB
     Dosage: 150 MILLIGRAM, 4TH INJECTION
     Route: 065
     Dates: start: 20210808
  5. TILDRAKIZUMAB [Suspect]
     Active Substance: TILDRAKIZUMAB
     Dosage: 150 MILLIGRAM, 5TH INJECTION
     Route: 065
     Dates: start: 20211208
  6. TILDRAKIZUMAB [Suspect]
     Active Substance: TILDRAKIZUMAB
     Dosage: 150 MILLIGRAM, 6TH INJECTION
     Route: 065
     Dates: start: 20220308

REACTIONS (1)
  - Hepatic cancer [Fatal]
